FAERS Safety Report 20136048 (Version 3)
Quarter: 2023Q4

REPORT INFORMATION
  Report Type: Other
  Country: GB (occurrence: GB)
  Receive Date: 20211201
  Receipt Date: 20231023
  Transmission Date: 20240110
  Serious: Yes (Disabling)
  Sender: FDA-Public Use
  Company Number: None

PATIENT
  Age: 61 Year
  Sex: Female
  Weight: 59 kg

DRUGS (6)
  1. MIRABEGRON [Suspect]
     Active Substance: MIRABEGRON
     Indication: Hypertonic bladder
     Route: 065
  2. MIRABEGRON [Suspect]
     Active Substance: MIRABEGRON
     Dosage: 25 MG, UNKNOWN FREQ (DOSE REDUCED)
     Route: 048
     Dates: start: 20211113, end: 20211120
  3. MIRABEGRON [Suspect]
     Active Substance: MIRABEGRON
     Dosage: 25 MG, EVERY OTHER DAY (ALTERNATE DAYS)
     Route: 065
  4. MIRABEGRON [Suspect]
     Active Substance: MIRABEGRON
     Dosage: 25 MG, UNKNOWN FREQ (FOR A WEEK)
     Route: 065
  5. MIRABEGRON [Suspect]
     Active Substance: MIRABEGRON
     Dosage: 25 MG, ONE PER 48 HOURS
     Route: 065
  6. MIRABEGRON [Suspect]
     Active Substance: MIRABEGRON
     Dosage: 25 MG, EVERY 3 DAYS (1 PER 72 HOURS)
     Route: 065

REACTIONS (4)
  - Insomnia [Recovering/Resolving]
  - Restlessness [Recovering/Resolving]
  - Nightmare [Unknown]
  - Micturition urgency [Unknown]

NARRATIVE: CASE EVENT DATE: 20211114
